FAERS Safety Report 16325718 (Version 5)
Quarter: 2021Q2

REPORT INFORMATION
  Report Type: Report from Study
  Country: None (occurrence: US)
  Receive Date: 20190517
  Receipt Date: 20210623
  Transmission Date: 20210716
  Serious: Yes (Hospitalization, Other)
  Sender: FDA-Public Use
  Company Number: US-ABBVIE-19P-163-2784033-00

PATIENT
  Age: 17 Year
  Sex: Male
  Weight: 75 kg

DRUGS (7)
  1. CYANOCOBALAMIN (VITAMIN B12) [Concomitant]
     Indication: VITAMIN SUPPLEMENTATION
     Route: 058
     Dates: start: 20160127, end: 20190508
  2. LACTOBACILLUS RHAMNOSUS [Concomitant]
     Active Substance: LACTOBACILLUS RHAMNOSUS
     Indication: SUPPLEMENTATION THERAPY
     Route: 048
     Dates: start: 20160215, end: 20190508
  3. MULTIVITAMIN WITH FLUORIDE [Concomitant]
     Active Substance: .ALPHA.-TOCOPHEROL\.ALPHA.-TOCOPHEROL ACETATE\.ALPHA.-TOCOPHEROL ACETATE, DL-\ASCORBIC ACID\CHOLECALCIFEROL\COBALAMIN\CYANOCOBALAMIN\FLUORIDE ION\FOLIC ACID\NIACIN\NIACINAMIDE\PYRIDOXINE\PYRIDOXINE HYDROCHLORIDE\RIBOFLAVIN\SODIUM ASCORBATE\SODIUM FLUORIDE\THIAMINE\THIAMINE MONONITRATE\VITAMIN A\VITA
     Indication: VITAMIN SUPPLEMENTATION
     Route: 048
     Dates: start: 20160215, end: 20190508
  4. HUMIRA [Suspect]
     Active Substance: ADALIMUMAB
     Route: 058
     Dates: start: 20171112, end: 20190508
  5. HUMIRA [Suspect]
     Active Substance: ADALIMUMAB
     Indication: CROHN^S DISEASE
     Route: 058
     Dates: start: 20151125, end: 20171105
  6. SACCHAROMYCES BOULARDII [Concomitant]
     Active Substance: SACCHAROMYCES CEREVISIAE
     Indication: SUPPLEMENTATION THERAPY
     Route: 048
     Dates: start: 20160215, end: 20190508
  7. PROZAC [Concomitant]
     Active Substance: FLUOXETINE HYDROCHLORIDE
     Indication: ANXIETY
     Route: 048
     Dates: start: 20160215, end: 20190508

REACTIONS (2)
  - Clostridium difficile colitis [Recovered/Resolved]
  - Ileal stenosis [Recovered/Resolved]

NARRATIVE: CASE EVENT DATE: 20190506
